FAERS Safety Report 20139853 (Version 1)
Quarter: 2021Q4

REPORT INFORMATION
  Report Type: Spontaneous
  Country: IE (occurrence: IE)
  Receive Date: 20211202
  Receipt Date: 20211202
  Transmission Date: 20220303
  Serious: Yes (Hospitalization)
  Sender: FDA-Public Use
  Company Number: IE-ABBVIE-21K-229-4180434-00

PATIENT
  Age: 69 Year
  Sex: Female

DRUGS (1)
  1. EPILIM [Suspect]
     Active Substance: VALPROATE SODIUM
     Indication: Affective disorder
     Dosage: 750 MG IN THE MORNING AND 1700 MG IN THE EVENING
     Route: 048

REACTIONS (2)
  - Gastrointestinal disorder [Unknown]
  - Product use complaint [Unknown]
